FAERS Safety Report 5826831-9 (Version None)
Quarter: 2008Q3

REPORT INFORMATION
  Report Type: 
  Country: None (occurrence: None)
  Receive Date: 20080729
  Receipt Date: 20080729
  Transmission Date: 20090109
  Serious: Yes (Death)
  Sender: FDA-Public Use
  Company Number: None

PATIENT
  Sex: Male
  Weight: 87.3 kg

DRUGS (11)
  1. DASATINIB, 50 MG + 20 MG, BRISTOL MYERS SQUIBB [Suspect]
     Indication: PROSTATE CANCER
     Dosage: 70 MG BID, PO
     Route: 048
     Dates: start: 20080710, end: 20080715
  2. ENTERIC ASPIRIN [Concomitant]
  3. DOCUSATE SODIUM [Concomitant]
  4. PREDNISONE TAB [Concomitant]
  5. METOPROLOL SUCCINATE [Concomitant]
  6. HYDROCODONE BITARTRATE AND ACETAMINOPHEN [Concomitant]
  7. METFORMIN HCL [Concomitant]
  8. PROCHLORPERAZINE [Concomitant]
  9. MORPHINE [Concomitant]
  10. ENABLEX [Concomitant]
  11. METOCLOPRADINE [Concomitant]

REACTIONS (8)
  - ANOREXIA [None]
  - DEHYDRATION [None]
  - DISEASE PROGRESSION [None]
  - HYPONATRAEMIA [None]
  - INCORRECT DOSE ADMINISTERED [None]
  - NAUSEA [None]
  - PAIN [None]
  - VOMITING [None]
